FAERS Safety Report 9438062 (Version 2)
Quarter: 2014Q3

REPORT INFORMATION
  Report Type: Spontaneous
  Country: US (occurrence: US)
  Receive Date: 20130802
  Receipt Date: 20140723
  Transmission Date: 20150326
  Serious: Yes (Hospitalization, Other)
  Sender: FDA-Public Use
  Company Number: US-009507513-1307USA017118

PATIENT
  Sex: Female
  Weight: 68.27 kg

DRUGS (1)
  1. NUVARING [Suspect]
     Active Substance: ETHINYL ESTRADIOL\ETONOGESTREL
     Dosage: UNK
     Route: 067
     Dates: start: 200706

REACTIONS (8)
  - Pneumonia [Recovering/Resolving]
  - Pulmonary infarction [Unknown]
  - Coagulopathy [Unknown]
  - Nasopharyngitis [Unknown]
  - Pleural effusion [Unknown]
  - Bursitis [Unknown]
  - Pulmonary embolism [Recovering/Resolving]
  - Oropharyngeal pain [Unknown]

NARRATIVE: CASE EVENT DATE: 200706
